FAERS Safety Report 6435126-4 (Version None)
Quarter: 2009Q4

REPORT INFORMATION
  Report Type: 
  Country: None (occurrence: None)
  Receive Date: 20091110
  Receipt Date: 20091103
  Transmission Date: 20100525
  Serious: Yes (Other)
  Sender: FDA-Public Use
  Company Number: US-ASTRAZENECA-2009SE24165

PATIENT
  Age: 22412 Day
  Sex: Male
  Weight: 90.7 kg

DRUGS (4)
  1. NEXIUM [Suspect]
     Route: 048
     Dates: start: 20080101
  2. MICARDIS [Concomitant]
     Route: 065
  3. ZETIA [Concomitant]
     Route: 065
  4. COLCHICINE [Concomitant]
     Route: 065

REACTIONS (1)
  - CEREBROVASCULAR ACCIDENT [None]
